FAERS Safety Report 6543742-4 (Version None)
Quarter: 2010Q1

REPORT INFORMATION
  Report Type: 
  Country: None (occurrence: None)
  Receive Date: 20100120
  Receipt Date: 20100112
  Transmission Date: 20100710
  Serious: Yes (Other)
  Sender: FDA-Public Use
  Company Number: US-PFIZER INC-2009295484

PATIENT
  Sex: Female
  Weight: 48 kg

DRUGS (5)
  1. NEURONTIN [Suspect]
     Indication: FIBROMYALGIA
     Dosage: 300 MG, 1X/DAY
     Route: 048
     Dates: start: 20070801, end: 20091101
  2. TRAZODONE HYDROCHLORIDE [Concomitant]
     Dosage: 150 MG, 2X/DAY
     Route: 048
  3. MS CONTIN [Concomitant]
     Indication: PAIN
     Dosage: 75 MG, 1X/DAY
     Route: 048
  4. ACETAMINOPHEN [Concomitant]
     Indication: MIGRAINE
     Dosage: UNK, AS NEEDED
     Route: 048
  5. KLONOPIN [Concomitant]
     Dosage: 1 MG, 1X/DAY

REACTIONS (4)
  - CONFUSIONAL STATE [None]
  - DISORIENTATION [None]
  - DYSSTASIA [None]
  - LOSS OF CONSCIOUSNESS [None]
